FAERS Safety Report 5150425-4 (Version None)
Quarter: 2006Q4

REPORT INFORMATION
  Report Type: 
  Country: None (occurrence: None)
  Receive Date: 20061109
  Receipt Date: 20061109
  Transmission Date: 20070319
  Serious: Yes (Life-Threatening)
  Sender: FDA-Public Use
  Company Number: None

PATIENT
  Age: 62 Year
  Sex: Female

DRUGS (18)
  1. CORVERT [Suspect]
     Indication: ARRHYTHMIA SUPRAVENTRICULAR
     Dosage: 1 MG X 2 DOSES IV BOLUS
     Route: 040
     Dates: start: 20060519, end: 20060519
  2. DILTIAZEM [Concomitant]
  3. DIGOXIN [Concomitant]
  4. ATORVASTATIN CALCIUM [Concomitant]
  5. GLIMEPIRIDE [Concomitant]
  6. HYDROCHLOROTHIAZIDE [Concomitant]
  7. PIOGLITAZONE HCL [Concomitant]
  8. LEVOTHYROXINE SODIUM [Concomitant]
  9. PANTOPRAZOLE SODIUM [Concomitant]
  10. RAMIPRIL [Concomitant]
  11. ENOXAPARIN SODIUM [Concomitant]
  12. WARFARIN SODIUM [Concomitant]
  13. METOPROLOL [Concomitant]
  14. INSULIN [Concomitant]
  15. ASPIRIN [Concomitant]
  16. CALCIUM/VIT D [Concomitant]
  17. CLOPIDOGREL [Concomitant]
  18. ACETYLCYSTEINE [Concomitant]

REACTIONS (6)
  - ATRIAL FIBRILLATION [None]
  - ELECTROCARDIOGRAM QT CORRECTED INTERVAL PROLONGED [None]
  - FATIGUE [None]
  - LOSS OF CONSCIOUSNESS [None]
  - TORSADE DE POINTES [None]
  - VENTRICULAR TACHYCARDIA [None]
